FAERS Safety Report 19376565 (Version 4)
Quarter: 2021Q2

REPORT INFORMATION
  Report Type: Report from Study
  Country: US (occurrence: US)
  Receive Date: 20210604
  Receipt Date: 20210614
  Transmission Date: 20210717
  Serious: Yes (Life-Threatening)
  Sender: FDA-Public Use
  Company Number: US-CELGENEUS-USA-20210404742

PATIENT
  Age: 81 Year
  Sex: Female
  Weight: 48 kg

DRUGS (17)
  1. ZYLOPRIM [Concomitant]
     Active Substance: ALLOPURINOL
     Indication: PROPHYLAXIS
     Dosage: 300 MG X 1 X 1 DAYS
     Route: 048
     Dates: start: 20210310, end: 20210324
  2. VORICONAZOLE (VFEND) [Concomitant]
     Indication: PROPHYLAXIS
     Dosage: 200 MG X 1 X 12 HOURS
     Route: 048
     Dates: start: 20210501
  3. CC?90009 [Suspect]
     Active Substance: INVESTIGATIONAL PRODUCT
     Indication: ACUTE MYELOID LEUKAEMIA
     Dosage: 3 MG X 1 X 1 DAYS
     Route: 042
     Dates: start: 20210315, end: 20210315
  4. CC?90009 [Suspect]
     Active Substance: INVESTIGATIONAL PRODUCT
     Dosage: 3 MG X 1 X 1 DAYS
     Route: 042
     Dates: start: 20210421, end: 20210421
  5. VENETOCLAX. [Suspect]
     Active Substance: VENETOCLAX
     Indication: ACUTE MYELOID LEUKAEMIA
     Dosage: 100 MG X 1 X 1 DAYS
     Route: 048
     Dates: start: 20210312, end: 20210312
  6. ACYCLOVIR (ZOVIRAX) [Concomitant]
     Indication: PROPHYLAXIS
     Dosage: 180 MG X 1 X 12 HOURS
     Route: 042
     Dates: start: 20210321, end: 20210323
  7. AZACITIDINE. [Suspect]
     Active Substance: AZACITIDINE
     Dosage: 105.75 MG X 1 X 1 DAYS
     Route: 065
     Dates: start: 20210416, end: 20210416
  8. LIDOCAINE?PRILOCAINE (EMLA) 2.5% CREAM [Concomitant]
     Indication: CATHETER SITE PAIN
     Dosage: 25 G X 1 X 1 DAYS
     Route: 061
     Dates: start: 20210104
  9. CALCIUM CARBONATE (OSCAL) [Concomitant]
     Indication: MINERAL SUPPLEMENTATION
     Dosage: 1250 MG X 3 X 1 DAYS
     Route: 048
     Dates: start: 20210312
  10. CHOLECALCIFEROL (VITAMIN D) [Concomitant]
     Indication: PROPHYLAXIS
     Dosage: 1000 IU X 1 X 1 DAYS
     Route: 048
     Dates: start: 20210312
  11. OXYBUTYNIN (DITROPAN) [Concomitant]
     Indication: POLLAKIURIA
     Dosage: 5 MG X 3 X 1 DAYS
     Route: 048
     Dates: start: 20210310, end: 20210324
  12. AZACITIDINE. [Suspect]
     Active Substance: AZACITIDINE
     Dosage: MG X 1 X 1 DAYS
     Route: 065
     Dates: start: 20210417, end: 20210417
  13. CC?90009 [Suspect]
     Active Substance: INVESTIGATIONAL PRODUCT
     Dosage: MG X 1 X 1 DAYS
     Route: 042
     Dates: start: 20210415, end: 20210415
  14. VENETOCLAX. [Suspect]
     Active Substance: VENETOCLAX
     Dosage: 400 MG X 1 X 1 DAYS
     Route: 048
     Dates: start: 20210412, end: 20210417
  15. LEVAQUIN [Concomitant]
     Active Substance: LEVOFLOXACIN
     Indication: PROPHYLAXIS
     Dosage: 500 MG X 1 X 1 DAYS
     Route: 048
     Dates: start: 20210308
  16. AZACITIDINE. [Suspect]
     Active Substance: AZACITIDINE
     Indication: ACUTE MYELOID LEUKAEMIA
     Dosage: 111 MG X 1 X 1 DAYS
     Route: 058
     Dates: start: 20210312, end: 20210312
  17. AZACITIDINE. [Suspect]
     Active Substance: AZACITIDINE
     Dosage: 105.75 MG X 1 X 1 DAYS
     Route: 058
     Dates: start: 20210421, end: 20210421

REACTIONS (1)
  - Sepsis [Recovered/Resolved]

NARRATIVE: CASE EVENT DATE: 20210416
